FAERS Safety Report 5859530-8 (Version None)
Quarter: 2008Q3

REPORT INFORMATION
  Report Type: 
  Country: None (occurrence: None)
  Receive Date: 20080827
  Receipt Date: 20080820
  Transmission Date: 20090109
  Serious: Yes (Other)
  Sender: FDA-Public Use
  Company Number: A0743540A

PATIENT

DRUGS (1)
  1. REQUIP [Suspect]

REACTIONS (2)
  - VISUAL IMPAIRMENT [None]
  - VITREOUS DETACHMENT [None]
